FAERS Safety Report 18221252 (Version 1)
Quarter: 2020Q3

REPORT INFORMATION
  Report Type: Spontaneous
  Country: US (occurrence: US)
  Receive Date: 20200831
  Receipt Date: 20200831
  Transmission Date: 20201103
  Serious: No
  Sender: FDA-Public Use
  Company Number: None

PATIENT
  Sex: Male

DRUGS (2)
  1. METHYLPHENIDATE. [Suspect]
     Active Substance: METHYLPHENIDATE
  2. DEXTROAMPHETAMINE. [Suspect]
     Active Substance: DEXTROAMPHETAMINE

REACTIONS (1)
  - Therapeutic product effect incomplete [None]
